FAERS Safety Report 7208904-1 (Version None)
Quarter: 2011Q1

REPORT INFORMATION
  Report Type: 
  Country: None (occurrence: None)
  Receive Date: 20110104
  Receipt Date: 20101222
  Transmission Date: 20110831
  Serious: Yes (Other)
  Sender: FDA-Public Use
  Company Number: PHHY2010GR35409

PATIENT
  Age: 79 Year
  Sex: Male

DRUGS (6)
  1. SINTROM [Concomitant]
  2. FRUMIL [Concomitant]
  3. DIGOXIN [Concomitant]
  4. EXJADE [Suspect]
     Indication: IRON OVERLOAD
     Dosage: 1500 MG
     Dates: start: 20100511, end: 20100525
  5. EXELON [Concomitant]
  6. PRETERAX [Concomitant]

REACTIONS (3)
  - PLEURAL EFFUSION [None]
  - DIARRHOEA [None]
  - OEDEMA [None]
